FAERS Safety Report 8426762-4 (Version None)
Quarter: 2012Q2

REPORT INFORMATION
  Report Type: 
  Country: None (occurrence: None)
  Receive Date: 20120611
  Receipt Date: 20120605
  Transmission Date: 20120825
  Serious: Yes (Other)
  Sender: FDA-Public Use
  Company Number: PHHY2012JP048181

PATIENT
  Age: 16 Year
  Sex: Female

DRUGS (2)
  1. HEPARIN [Suspect]
  2. HEPARIN [Concomitant]
     Route: 061

REACTIONS (7)
  - CONCOMITANT DISEASE AGGRAVATED [None]
  - TUMOUR NECROSIS FACTOR RECEPTOR-ASSOCIATED PERIODIC SYNDROME [None]
  - MYALGIA [None]
  - ABDOMINAL PAIN [None]
  - ERYTHEMA [None]
  - DYSPNOEA [None]
  - PYREXIA [None]
